FAERS Safety Report 7207951-3 (Version None)
Quarter: 2011Q1

REPORT INFORMATION
  Report Type: 
  Country: None (occurrence: None)
  Receive Date: 20110104
  Receipt Date: 20101223
  Transmission Date: 20110831
  Serious: Yes (Hospitalization, Disabling, Other)
  Sender: FDA-Public Use
  Company Number: US-ELI_LILLY_AND_COMPANY-US201002001304

PATIENT
  Sex: Female

DRUGS (6)
  1. FORTEO [Suspect]
     Indication: OSTEOPOROSIS
     Dosage: 20 UG, DAILY (1/D)
     Dates: start: 20090101, end: 20100825
  2. FORTEO [Suspect]
  3. ASPIRIN [Concomitant]
  4. ACIPHEX [Concomitant]
  5. METOPROLOL [Concomitant]
     Indication: BLOOD PRESSURE
  6. KLONOPIN [Concomitant]
     Indication: RESTLESS LEGS SYNDROME

REACTIONS (21)
  - RASH GENERALISED [None]
  - ARTHRALGIA [None]
  - BEDRIDDEN [None]
  - NERVE COMPRESSION [None]
  - MALAISE [None]
  - BONE NEOPLASM [None]
  - BACK PAIN [None]
  - SPINAL DISORDER [None]
  - PRURITUS [None]
  - HYPERHIDROSIS [None]
  - ABDOMINAL PAIN UPPER [None]
  - HEPATIC NEOPLASM MALIGNANT [None]
  - LUNG NEOPLASM MALIGNANT [None]
  - RENAL DISORDER [None]
  - THROMBOSIS [None]
  - GAIT DISTURBANCE [None]
  - SKIN HYPERTROPHY [None]
  - DRY SKIN [None]
  - SKIN DISCOLOURATION [None]
  - MOVEMENT DISORDER [None]
  - DRUG DOSE OMISSION [None]
